FAERS Safety Report 5749665-2 (Version None)
Quarter: 2008Q2

REPORT INFORMATION
  Report Type: 
  Country: None (occurrence: None)
  Receive Date: 20080527
  Receipt Date: 20080523
  Transmission Date: 20081010
  Serious: Yes (Hospitalization)
  Sender: FDA-Public Use
  Company Number: AU-MERCK-0805AUS00193

PATIENT
  Age: 94 Year
  Sex: Female

DRUGS (1)
  1. FOSAMAX PLUS D [Suspect]
     Indication: OSTEOPOROSIS
     Route: 048
     Dates: end: 20070815

REACTIONS (3)
  - ABSCESS [None]
  - OSTEONECROSIS [None]
  - PAIN IN JAW [None]
